FAERS Safety Report 16590752 (Version 1)
Quarter: 2019Q3

REPORT INFORMATION
  Report Type: Spontaneous
  Country: US (occurrence: US)
  Receive Date: 20190718
  Receipt Date: 20190718
  Transmission Date: 20191004
  Serious: Yes (Other)
  Sender: FDA-Public Use
  Company Number: US-PFIZER INC-2019300985

PATIENT
  Age: 14 Year
  Sex: Male

DRUGS (1)
  1. GENOTROPIN [Suspect]
     Active Substance: SOMATROPIN
     Dosage: 2 MG, UNK (6 DAYS A WEEK)

REACTIONS (4)
  - Short-bowel syndrome [Unknown]
  - Delayed puberty [Unknown]
  - Gastrointestinal haemorrhage [Unknown]
  - Anaemia [Unknown]
